FAERS Safety Report 22274842 (Version 3)
Quarter: 2024Q1

REPORT INFORMATION
  Report Type: Spontaneous
  Country: US (occurrence: US)
  Receive Date: 20230502
  Receipt Date: 20240212
  Transmission Date: 20240409
  Serious: Yes (Death)
  Sender: FDA-Public Use
  Company Number: US-PFIZER INC-PV202300078849

PATIENT
  Age: 82 Year
  Sex: Male
  Weight: 140.59 kg

DRUGS (9)
  1. VYNDAMAX [Suspect]
     Active Substance: TAFAMIDIS
     Indication: Amyloidosis
     Dosage: 61 MG
  2. VYNDAMAX [Suspect]
     Active Substance: TAFAMIDIS
     Indication: Cardiac amyloidosis
     Dosage: 20 MG, 1X/DAY
     Dates: start: 2020
  3. ELIQUIS [Concomitant]
     Active Substance: APIXABAN
  4. TORSEMIDE [Concomitant]
     Active Substance: TORSEMIDE
  5. ALLOPURINOL [Concomitant]
     Active Substance: ALLOPURINOL
  6. MITIGARE [Concomitant]
     Active Substance: COLCHICINE
  7. POTASSIUM CHLORIDE [Concomitant]
     Active Substance: POTASSIUM CHLORIDE
  8. ONDANSETRON [Concomitant]
     Active Substance: ONDANSETRON
  9. LEVOTHYROXINE [Concomitant]
     Active Substance: LEVOTHYROXINE\LEVOTHYROXINE SODIUM

REACTIONS (8)
  - Cardiac failure congestive [Fatal]
  - Illness [Unknown]
  - Mobility decreased [Unknown]
  - Muscular weakness [Unknown]
  - Drug hypersensitivity [Unknown]
  - Dyspnoea [Unknown]
  - Fluid retention [Unknown]
  - Lung opacity [Unknown]
